FAERS Safety Report 5897513-2 (Version None)
Quarter: 2008Q3

REPORT INFORMATION
  Report Type: 
  Country: None (occurrence: None)
  Receive Date: 20080924
  Receipt Date: 20080924
  Transmission Date: 20090109
  Serious: No
  Sender: FDA-Public Use
  Company Number: None

PATIENT
  Age: 30 Year
  Sex: Female

DRUGS (5)
  1. KLONOPIN [Suspect]
     Dates: start: 20070817, end: 20070903
  2. ESCITALOPRAM (LEXAPRO) [Suspect]
     Dates: start: 20070817, end: 20070903
  3. PROTONIX [Concomitant]
  4. LABETALOL HCL [Concomitant]
  5. MULTI-VITAMIN [Concomitant]

REACTIONS (9)
  - ALANINE AMINOTRANSFERASE INCREASED [None]
  - ASPARTATE AMINOTRANSFERASE INCREASED [None]
  - BLOOD ALKALINE PHOSPHATASE INCREASED [None]
  - BLOOD BILIRUBIN INCREASED [None]
  - FATIGUE [None]
  - JAUNDICE [None]
  - LIVER INJURY [None]
  - PRURITUS [None]
  - WEIGHT DECREASED [None]
